FAERS Safety Report 5951545-4 (Version None)
Quarter: 2008Q4

REPORT INFORMATION
  Report Type: 
  Country: None (occurrence: None)
  Receive Date: 20081113
  Receipt Date: 20081106
  Transmission Date: 20090506
  Serious: Yes (Life-Threatening)
  Sender: FDA-Public Use
  Company Number: JP-TYCO HEALTHCARE/MALLINCKRODT-T200801694

PATIENT

DRUGS (6)
  1. OPTIRAY 300 [Suspect]
     Indication: COMPUTERISED TOMOGRAM
     Dosage: 67 ML, SINGLE
     Route: 042
     Dates: start: 20081016, end: 20081016
  2. NEUROTROPIN                        /01024301/ [Concomitant]
     Indication: PAIN
     Dosage: 4 IU, TID
     Route: 048
  3. LOXOPROFEN SODIUM [Concomitant]
     Indication: PAIN
     Dosage: 60 MG, TID
     Route: 048
  4. RISEDRONATE SODIUM [Concomitant]
     Indication: OSTEOPOROSIS
     Dosage: 2.5 MG, QD
     Route: 048
  5. ASPARTATE CALCIUM [Concomitant]
     Indication: OSTEOPOROSIS
     Dosage: 400 MG, BID
     Route: 048
  6. ALFACALCIDOL [Concomitant]
     Indication: OSTEOPOROSIS
     Dosage: 1 UG, QD
     Route: 048

REACTIONS (5)
  - ANAPHYLACTIC SHOCK [None]
  - BLOOD PRESSURE INCREASED [None]
  - DEPRESSED LEVEL OF CONSCIOUSNESS [None]
  - DYSPNOEA [None]
  - LOSS OF CONSCIOUSNESS [None]
